FAERS Safety Report 8590234-7 (Version None)
Quarter: 2012Q3

REPORT INFORMATION
  Report Type: 
  Country: None (occurrence: None)
  Receive Date: 20120813
  Receipt Date: 20120807
  Transmission Date: 20120928
  Serious: Yes (Other)
  Sender: FDA-Public Use
  Company Number: US-BRISTOL-MYERS SQUIBB COMPANY-16700205

PATIENT
  Age: 70 Year
  Sex: Female
  Weight: 60 kg

DRUGS (14)
  1. RAMUCIRUMAB [Suspect]
     Indication: NON-SMALL CELL LUNG CANCER
     Dosage: LAST DOSE 25OCT11
     Route: 042
     Dates: start: 20110802
  2. MORPHINE [Concomitant]
     Dates: start: 20110627
  3. NORTRIPTYLINE [Concomitant]
     Dates: start: 19830101
  4. COMPAZINE [Concomitant]
     Dates: start: 20110809
  5. CRESTOR [Concomitant]
     Dates: start: 20090101
  6. VITAMIN B-12 [Concomitant]
     Dates: start: 20110719
  7. NITROGLYCERIN [Concomitant]
     Dates: start: 20100201
  8. SENOKOT [Concomitant]
     Dates: start: 20110621
  9. FOLIC ACID [Concomitant]
     Dates: start: 20110719
  10. DEXAMETHASONE [Concomitant]
     Dates: start: 20110719
  11. LEVOTHYROXINE SODIUM [Concomitant]
     Dates: start: 19650101
  12. MS CONTIN [Concomitant]
     Dates: start: 20110627
  13. CARBOPLATIN [Suspect]
     Indication: NON-SMALL CELL LUNG CANCER
     Dosage: 1 DF = AUC6:PATIENT RECEIVED 752 MG LAST DOSE 25OCT11
     Route: 042
     Dates: start: 20110802
  14. PEMETREXED DISODIUM [Suspect]
     Indication: NON-SMALL CELL LUNG CANCER
     Dosage: LAST DOSE 25OCT11
     Route: 042
     Dates: start: 20110802

REACTIONS (1)
  - INCORRECT DOSE ADMINISTERED [None]
